FAERS Safety Report 9783442 (Version 1)
Quarter: 2013Q4

REPORT INFORMATION
  Report Type: Spontaneous
  Country: US (occurrence: US)
  Receive Date: 20131226
  Receipt Date: 20131226
  Transmission Date: 20140711
  Serious: Yes (Other)
  Sender: FDA-Public Use
  Company Number: US-PFIZER INC-2013366058

PATIENT
  Age: 63 Year
  Sex: Female
  Weight: 73.47 kg

DRUGS (2)
  1. ADVIL [Suspect]
     Indication: PAIN
     Dosage: 200 MG, EVERY TWO DAYS
     Route: 048
  2. ADVIL [Suspect]
     Dosage: 200 MG, EVERY TWO DAYS
     Route: 048

REACTIONS (5)
  - Myocardial infarction [Unknown]
  - Electrocardiogram abnormal [Unknown]
  - Flatulence [Unknown]
  - Condition aggravated [Unknown]
  - Therapeutic response unexpected [Unknown]
